APPROVED DRUG PRODUCT: GEMCITABINE HYDROCHLORIDE
Active Ingredient: GEMCITABINE HYDROCHLORIDE
Strength: EQ 200MG BASE/VIAL
Dosage Form/Route: INJECTABLE;INJECTION
Application: A202485 | Product #001 | TE Code: AP
Applicant: JIANGSU HANSOH PHARMACEUTICAL GROUP CO LTD
Approved: May 7, 2013 | RLD: No | RS: Yes | Type: RX